FAERS Safety Report 19906155 (Version 1)
Quarter: 2021Q4

REPORT INFORMATION
  Report Type: Report from Study
  Country: TH (occurrence: TH)
  Receive Date: 20211001
  Receipt Date: 20211001
  Transmission Date: 20220303
  Serious: Yes (Death)
  Sender: FDA-Public Use
  Company Number: 2021A025522

PATIENT
  Age: 82 Year
  Sex: Female

DRUGS (1)
  1. TAGRISSO [Suspect]
     Active Substance: OSIMERTINIB
     Indication: Lung neoplasm malignant
     Route: 048
     Dates: start: 20200911, end: 202109

REACTIONS (10)
  - Nail bed inflammation [Fatal]
  - Mouth ulceration [Fatal]
  - Back pain [Fatal]
  - Bone pain [Fatal]
  - Gingivitis [Fatal]
  - Nail pitting [Fatal]
  - Fatigue [Fatal]
  - Skin atrophy [Fatal]
  - Pleural effusion [Fatal]
  - Dry mouth [Fatal]

NARRATIVE: CASE EVENT DATE: 20200101
